FAERS Safety Report 9373277 (Version 1)
Quarter: 2013Q2

REPORT INFORMATION
  Report Type: Spontaneous
  Country: US (occurrence: US)
  Receive Date: 20130627
  Receipt Date: 20130627
  Transmission Date: 20140414
  Serious: Yes (Hospitalization)
  Sender: FDA-Public Use
  Company Number: CHPA2013US010351

PATIENT
  Sex: Female

DRUGS (5)
  1. EXCEDRIN MENSTRUAL COMPLETE [Suspect]
     Indication: DYSMENORRHOEA
     Dosage: UNK, UNK
     Route: 048
  2. EXCEDRIN UNKNOWN [Suspect]
     Dosage: UNK, UNK
     Route: 048
  3. TYLENOL [Concomitant]
     Indication: DYSMENORRHOEA
     Dosage: UNK, UNK
  4. MIDOL [Concomitant]
     Indication: DYSMENORRHOEA
     Dosage: UNK, UNK
  5. PAMPRIN [Concomitant]
     Indication: DYSMENORRHOEA
     Dosage: UNK, UNK

REACTIONS (1)
  - Thrombosis [Recovered/Resolved]
